FAERS Safety Report 23100786 (Version 1)
Quarter: 2023Q4

REPORT INFORMATION
  Report Type: Spontaneous
  Country: US (occurrence: None)
  Receive Date: 20231021
  Receipt Date: 20231021
  Transmission Date: 20240110
  Serious: Yes (Death)
  Sender: FDA-Public Use
  Company Number: None

PATIENT
  Age: 59 Year
  Sex: Female

DRUGS (1)
  1. POMALYST [Suspect]
     Active Substance: POMALIDOMIDE
     Indication: Plasma cell myeloma
     Dosage: FREQUENCY : EVERY OTHER DAY;?
     Route: 048
     Dates: start: 20230210, end: 20231014

REACTIONS (13)
  - Clostridium difficile colitis [None]
  - Atrial fibrillation [None]
  - Hypotension [None]
  - Metabolic acidosis [None]
  - Hypoglycaemia [None]
  - Colectomy total [None]
  - Ejection fraction decreased [None]
  - Acute kidney injury [None]
  - Bandaemia [None]
  - Shock [None]
  - Colitis [None]
  - Large intestine perforation [None]
  - Hypervolaemia [None]

NARRATIVE: CASE EVENT DATE: 20231014
